FAERS Safety Report 11383872 (Version 3)
Quarter: 2015Q4

REPORT INFORMATION
  Report Type: Spontaneous
  Country: US (occurrence: US)
  Receive Date: 20150814
  Receipt Date: 20151104
  Transmission Date: 20160304
  Serious: Yes (Hospitalization, Other)
  Sender: FDA-Public Use
  Company Number: US-JNJFOC-20150802404

PATIENT
  Age: 56 Year
  Sex: Female

DRUGS (8)
  1. LEVALBUTEROL. [Concomitant]
     Active Substance: LEVALBUTEROL
     Indication: PRODUCT USED FOR UNKNOWN INDICATION
     Route: 065
  2. ADVAIR HFA [Suspect]
     Active Substance: FLUTICASONE PROPIONATE\SALMETEROL XINAFOATE
     Indication: ASTHMA
     Dosage: 250/50UG, 1 PUFF
     Route: 055
     Dates: start: 2010
  3. ROBITUSSIN DM [Suspect]
     Active Substance: DEXTROMETHORPHAN HYDROBROMIDE\GUAIFENESIN
     Indication: PRODUCT USED FOR UNKNOWN INDICATION
     Route: 048
     Dates: start: 201505
  4. POTASSIUM [Concomitant]
     Active Substance: POTASSIUM
     Indication: PRODUCT USED FOR UNKNOWN INDICATION
     Route: 065
  5. PROAIR HFA [Concomitant]
     Active Substance: ALBUTEROL SULFATE
     Indication: PRODUCT USED FOR UNKNOWN INDICATION
     Route: 065
  6. BENADRYL [Suspect]
     Active Substance: DIPHENHYDRAMINE HYDROCHLORIDE
     Indication: PRODUCT USED FOR UNKNOWN INDICATION
     Route: 065
  7. BLACK COHOSH [Concomitant]
     Active Substance: BLACK COHOSH
     Route: 065
  8. PROVENTIL [Concomitant]
     Active Substance: ALBUTEROL
     Indication: PRODUCT USED FOR UNKNOWN INDICATION
     Route: 065

REACTIONS (12)
  - Pharyngeal oedema [Recovering/Resolving]
  - Blood pressure increased [Not Recovered/Not Resolved]
  - Throat tightness [Recovered/Resolved]
  - Feeling of body temperature change [Recovering/Resolving]
  - Myocardial infarction [Not Recovered/Not Resolved]
  - Body temperature abnormal [Not Recovered/Not Resolved]
  - Dizziness [Recovering/Resolving]
  - Asthenia [Not Recovered/Not Resolved]
  - Product quality issue [Unknown]
  - Feeling cold [Not Recovered/Not Resolved]
  - Hypersensitivity [Not Recovered/Not Resolved]
  - Inappropriate schedule of drug administration [Unknown]

NARRATIVE: CASE EVENT DATE: 201505
